FAERS Safety Report 5511552-2 (Version None)
Quarter: 2007Q4

REPORT INFORMATION
  Report Type: 
  Country: None (occurrence: None)
  Receive Date: 20071109
  Receipt Date: 20071030
  Transmission Date: 20080405
  Serious: Yes (Other)
  Sender: FDA-Public Use
  Company Number: US-JNJFOC-20071100394

PATIENT
  Sex: Female
  Weight: 57.15 kg

DRUGS (7)
  1. TOPAMAX [Suspect]
     Route: 048
  2. TOPAMAX [Suspect]
     Indication: CONVULSION PROPHYLAXIS
     Route: 048
  3. DIOVAN [Concomitant]
     Indication: HYPERTENSION
  4. M.V.I. [Concomitant]
  5. CALCIUM + D [Concomitant]
  6. BIOTIN [Concomitant]
  7. SELENIUM [Concomitant]

REACTIONS (3)
  - DIVERTICULITIS [None]
  - HAEMATURIA [None]
  - NEPHROLITHIASIS [None]
